FAERS Safety Report 5177686-X (Version None)
Quarter: 2006Q4

REPORT INFORMATION
  Report Type: 
  Country: None (occurrence: None)
  Receive Date: 20061218
  Receipt Date: 20060804
  Transmission Date: 20070319
  Serious: No
  Sender: FDA-Public Use
  Company Number: US-AMGEN-KDL188955

PATIENT
  Sex: Female

DRUGS (2)
  1. ENBREL [Suspect]
     Route: 058
     Dates: start: 20060601
  2. PLAQUENIL [Concomitant]
     Dates: start: 20051201

REACTIONS (4)
  - ARTHRALGIA [None]
  - DENTAL CARIES [None]
  - JOINT EFFUSION [None]
  - PAIN IN EXTREMITY [None]
